FAERS Safety Report 15007362 (Version 3)
Quarter: 2018Q3

REPORT INFORMATION
  Report Type: Report from Study
  Country: None (occurrence: CA)
  Receive Date: 20180613
  Receipt Date: 20180705
  Transmission Date: 20181010
  Serious: Yes (Hospitalization, Other)
  Sender: FDA-Public Use
  Company Number: CA-ABBVIE-18K-028-2386267-00

PATIENT
  Age: 69 Year
  Sex: Male

DRUGS (2)
  1. HUMIRA [Suspect]
     Active Substance: ADALIMUMAB
     Indication: CROHN^S DISEASE
     Route: 058
     Dates: start: 20170912, end: 20180426
  2. HUMIRA [Suspect]
     Active Substance: ADALIMUMAB
     Dosage: LOADING DOSE
     Route: 058
     Dates: start: 20180629, end: 20180629

REACTIONS (7)
  - Intestinal obstruction [Not Recovered/Not Resolved]
  - Skin swelling [Recovered/Resolved]
  - Skin haemorrhage [Recovered/Resolved]
  - Paraesthesia [Recovered/Resolved]
  - Intestinal fibrosis [Unknown]
  - Small intestinal stenosis [Unknown]
  - Pruritus [Recovered/Resolved]

NARRATIVE: CASE EVENT DATE: 20180629
